FAERS Safety Report 5743376-5 (Version None)
Quarter: 2008Q2

REPORT INFORMATION
  Report Type: 
  Country: None (occurrence: None)
  Receive Date: 20080515
  Receipt Date: 20080515
  Transmission Date: 20081010
  Serious: Yes (Hospitalization, Other)
  Sender: FDA-Public Use
  Company Number: None

PATIENT
  Age: 63 Year
  Sex: Male
  Weight: 115.2136 kg

DRUGS (2)
  1. BOTOX [Suspect]
     Indication: DYSTONIA
     Dosage: 325 UNITS Q3MONTHS IM
     Route: 030
     Dates: start: 20070109, end: 20070717
  2. BOTOX [Suspect]

REACTIONS (12)
  - AUTOIMMUNE DISORDER [None]
  - CENTRAL NERVOUS SYSTEM LESION [None]
  - CONDITION AGGRAVATED [None]
  - CSF IMMUNOGLOBULIN INCREASED [None]
  - DEMENTIA [None]
  - ENCEPHALITIS ALLERGIC [None]
  - ENCEPHALOPATHY [None]
  - HICCUPS [None]
  - POSTOPERATIVE WOUND INFECTION [None]
  - RASH [None]
  - TYPE IV HYPERSENSITIVITY REACTION [None]
  - VASCULITIS [None]
